FAERS Safety Report 6819284-5 (Version None)
Quarter: 2010Q3

REPORT INFORMATION
  Report Type: 
  Country: None (occurrence: None)
  Receive Date: 20100707
  Receipt Date: 20100629
  Transmission Date: 20110219
  Serious: Yes (Death, Other)
  Sender: FDA-Public Use
  Company Number: JP-BAYER-201013264BYL

PATIENT
  Age: 57 Year
  Sex: Male

DRUGS (3)
  1. FLUDARA [Suspect]
     Indication: LYMPHOPLASMACYTOID LYMPHOMA/IMMUNOCYTOMA STAGE IV
     Route: 048
     Dates: start: 20080827, end: 20080831
  2. RITUXAN [Concomitant]
     Indication: LYMPHOPLASMACYTOID LYMPHOMA/IMMUNOCYTOMA STAGE IV
     Route: 041
     Dates: start: 20080827, end: 20080827
  3. DECADRON [Concomitant]
     Indication: ALTERED STATE OF CONSCIOUSNESS

REACTIONS (2)
  - ALTERED STATE OF CONSCIOUSNESS [None]
  - NON-HODGKIN'S LYMPHOMA [None]
